FAERS Safety Report 7636393-1 (Version None)
Quarter: 2011Q3

REPORT INFORMATION
  Report Type: 
  Country: None (occurrence: None)
  Receive Date: 20110726
  Receipt Date: 20110718
  Transmission Date: 20111222
  Serious: Yes (Life-Threatening, Other)
  Sender: FDA-Public Use
  Company Number: BR-AMGEN-BRASP2011030771

PATIENT
  Age: 64 Year
  Sex: Female
  Weight: 90 kg

DRUGS (4)
  1. ALENDRONATE SODIUM [Concomitant]
     Dosage: UNK
     Dates: start: 20030101
  2. ENBREL [Suspect]
     Indication: RHEUMATOID ARTHRITIS
     Dosage: 25 MG, 2X/WEEK
     Route: 058
     Dates: start: 20091001, end: 20110401
  3. PREDNISONE [Concomitant]
     Dosage: UNK
     Dates: start: 20040101
  4. METHOTREXATE [Concomitant]
     Dosage: UNK
     Dates: start: 20040101, end: 20110401

REACTIONS (2)
  - MALIGNANT MELANOMA [None]
  - OBESITY [None]
